FAERS Safety Report 8446889-0 (Version None)
Quarter: 2012Q2

REPORT INFORMATION
  Report Type: 
  Country: None (occurrence: None)
  Receive Date: 20120612
  Receipt Date: 20120612
  Transmission Date: 20120825
  Serious: No
  Sender: FDA-Public Use
  Company Number: None

PATIENT
  Sex: Female
  Weight: 72.8 kg

DRUGS (4)
  1. FLUOROURACIL [Suspect]
     Dosage: TOTAL DOSE ADMINISTERED 15753 MG
  2. BEVACIZUMAB (RHUMAB VEGF) [Suspect]
     Dosage: TOTAL DOSE ADMINISTERED 1415 MG
  3. LEUCOVORIN CALCIUM [Suspect]
     Dosage: TOTAL DOSE ADMINISTERED 2800 MG
  4. IRINOTECAN HCL [Suspect]
     Dosage: TOTAL DOSE ADMINISTERED 1040 MG

REACTIONS (4)
  - DISEASE PROGRESSION [None]
  - PELVIC MASS [None]
  - DEEP VEIN THROMBOSIS [None]
  - PULMONARY EMBOLISM [None]
